FAERS Safety Report 7175824-0 (Version None)
Quarter: 2010Q4

REPORT INFORMATION
  Report Type: 
  Country: None (occurrence: None)
  Receive Date: 20101220
  Receipt Date: 20100407
  Transmission Date: 20110411
  Serious: No
  Sender: FDA-Public Use
  Company Number: US-AMGEN-TCS398244

PATIENT

DRUGS (10)
  1. ENBREL [Suspect]
     Indication: RHEUMATOID ARTHRITIS
     Dosage: 50 MG, QWK
     Route: 058
     Dates: start: 20090306
  2. METHOTREXATE [Concomitant]
     Dosage: 17.5 MG, QWK
     Route: 048
  3. LISINOPRIL [Concomitant]
  4. FAMOTIDINE [Concomitant]
  5. CALCIUM [Concomitant]
  6. FOLIC ACID [Concomitant]
  7. MULTI-VITAMINS [Concomitant]
  8. NOVALOG INSULIN [Concomitant]
  9. INSULIN GLARGINE [Concomitant]
  10. PREDNISONE [Concomitant]
     Dosage: UNK UNK, UNK
     Dates: end: 20090101

REACTIONS (4)
  - BLOOD GLUCOSE DECREASED [None]
  - INFLUENZA LIKE ILLNESS [None]
  - WEIGHT DECREASED [None]
  - WEIGHT INCREASED [None]
